FAERS Safety Report 8073773-7 (Version None)
Quarter: 2012Q1

REPORT INFORMATION
  Report Type: 
  Country: None (occurrence: None)
  Receive Date: 20120126
  Receipt Date: 20120118
  Transmission Date: 20120608
  Serious: Yes (Other)
  Sender: FDA-Public Use
  Company Number: CHPA2012US001669

PATIENT
  Age: 44 Year
  Sex: Female

DRUGS (2)
  1. EXCEDRIN EXTRA STRENGTH CAPLETS [Suspect]
     Indication: PAIN
     Dosage: 6 DF, UNK
     Dates: start: 20111204, end: 20111204
  2. EXCEDRIN (MIGRAINE) [Suspect]
     Indication: MIGRAINE
     Dosage: 1 DF, PRN
     Route: 048

REACTIONS (4)
  - RENAL DISORDER [None]
  - KIDNEY ENLARGEMENT [None]
  - PAIN [None]
  - BLADDER DISORDER [None]
